FAERS Safety Report 18360819 (Version 1)
Quarter: 2020Q4

REPORT INFORMATION
  Report Type: Spontaneous
  Country: CN (occurrence: CN)
  Receive Date: 20201008
  Receipt Date: 20201008
  Transmission Date: 20210114
  Serious: Yes (Other)
  Sender: FDA-Public Use
  Company Number: CN-ASTRAZENECA-2020SF28414

PATIENT
  Age: 84 Year
  Sex: Male
  Weight: 49 kg

DRUGS (3)
  1. PULMICORT RESPULES [Suspect]
     Active Substance: BUDESONIDE
     Indication: INFLAMMATION
     Route: 055
     Dates: start: 20200915
  2. PULMICORT RESPULES [Suspect]
     Active Substance: BUDESONIDE
     Indication: BRONCHITIS
     Route: 055
     Dates: start: 20200915
  3. PULMICORT RESPULES [Suspect]
     Active Substance: BUDESONIDE
     Indication: ASTHMA
     Route: 055
     Dates: start: 20200915

REACTIONS (8)
  - Dyspnoea [Recovering/Resolving]
  - Respiratory rate increased [Unknown]
  - Cyanosis [Unknown]
  - Respiration abnormal [Unknown]
  - Rales [Unknown]
  - Hyperhidrosis [Unknown]
  - Heart rate increased [Unknown]
  - Anxiety [Unknown]

NARRATIVE: CASE EVENT DATE: 20200915
